FAERS Safety Report 8426177-9 (Version None)
Quarter: 2012Q2

REPORT INFORMATION
  Report Type: 
  Country: None (occurrence: None)
  Receive Date: 20120611
  Receipt Date: 20120530
  Transmission Date: 20120825
  Serious: Yes (Hospitalization, Other)
  Sender: FDA-Public Use
  Company Number: US-BRISTOL-MYERS SQUIBB COMPANY-16646986

PATIENT
  Age: 74 Year
  Sex: Male
  Weight: 69 kg

DRUGS (1)
  1. ORENCIA [Suspect]
     Indication: RHEUMATOID ARTHRITIS
     Dosage: 4 AND HALF YEARS 10APR12
     Route: 042

REACTIONS (7)
  - GALLBLADDER OPERATION [None]
  - PAIN IN EXTREMITY [None]
  - PRECANCEROUS SKIN LESION [None]
  - GANGRENE [None]
  - JOINT SWELLING [None]
  - WEIGHT DECREASED [None]
  - MUSCULOSKELETAL DISCOMFORT [None]
